FAERS Safety Report 8229420-4 (Version None)
Quarter: 2012Q1

REPORT INFORMATION
  Report Type: 
  Country: None (occurrence: None)
  Receive Date: 20120322
  Receipt Date: 20120315
  Transmission Date: 20120608
  Serious: Yes (Death, Life-Threatening, Other)
  Sender: FDA-Public Use
  Company Number: JP-CELGENEUS-087-21880-12030475

PATIENT
  Sex: Female
  Weight: 55 kg

DRUGS (9)
  1. FAMOTIDINE [Concomitant]
     Dosage: 20 MILLIGRAM
     Route: 048
     Dates: start: 20120306, end: 20120307
  2. ZOLPIDEM [Concomitant]
     Dosage: 10 MILLIGRAM
     Route: 048
     Dates: start: 20120306, end: 20120307
  3. BIO-THREE [Concomitant]
     Dosage: 6 TABLET
     Route: 048
     Dates: start: 20120229, end: 20120307
  4. REVLIMID [Suspect]
     Dosage: 10 MILLIGRAM
     Route: 048
     Dates: start: 20120228, end: 20120305
  5. NORVASC [Concomitant]
     Dosage: 5 MILLIGRAM
     Route: 048
     Dates: start: 20120306, end: 20120307
  6. DIOVAN [Concomitant]
     Dosage: 80 MILLIGRAM
     Route: 048
     Dates: start: 20120306, end: 20120307
  7. CATABON [Concomitant]
     Route: 065
     Dates: start: 20120301
  8. PLAVIX [Concomitant]
     Dosage: 75 MILLIGRAM
     Route: 048
     Dates: start: 20120306, end: 20120307
  9. NOREPINEPHRINE BITARTRATE [Concomitant]
     Route: 065
     Dates: start: 20120301

REACTIONS (2)
  - CARDIAC FAILURE CONGESTIVE [None]
  - HAEMOLYTIC ANAEMIA [None]
